FAERS Safety Report 7319820-9 (Version None)
Quarter: 2011Q1

REPORT INFORMATION
  Report Type: 
  Country: None (occurrence: None)
  Receive Date: 20110228
  Receipt Date: 20101022
  Transmission Date: 20110831
  Serious: No
  Sender: FDA-Public Use
  Company Number: A0885565A

PATIENT
  Age: 24 Year
  Sex: Male

DRUGS (2)
  1. LAMICTAL [Suspect]
     Dosage: 2.5TAB TWICE PER DAY
     Route: 065
  2. ABILIFY [Suspect]
     Dosage: 5MG IN THE MORNING
     Route: 048
     Dates: start: 20080501

REACTIONS (2)
  - TARDIVE DYSKINESIA [None]
  - TIC [None]
